FAERS Safety Report 18324562 (Version 1)
Quarter: 2020Q3

REPORT INFORMATION
  Report Type: Spontaneous
  Country: US (occurrence: US)
  Receive Date: 20200929
  Receipt Date: 20200929
  Transmission Date: 20201103
  Serious: Yes (Other)
  Sender: FDA-Public Use
  Company Number: US-PFIZER INC-2016177293

PATIENT
  Age: 60 Year
  Sex: Female

DRUGS (1)
  1. CELEBREX [Suspect]
     Active Substance: CELECOXIB
     Indication: HYPERLIPIDAEMIA
     Dosage: 200 MG, 2X/DAY (1 CAPSULE, ORAL, TWO TIMES DAILY)
     Route: 048

REACTIONS (3)
  - Multiple fractures [Unknown]
  - Product use in unapproved indication [Unknown]
  - Off label use [Unknown]
